FAERS Safety Report 5118480-5 (Version None)
Quarter: 2006Q4

REPORT INFORMATION
  Report Type: 
  Country: None (occurrence: None)
  Receive Date: 20061002
  Receipt Date: 20060912
  Transmission Date: 20070319
  Serious: Yes (Hospitalization)
  Sender: FDA-Public Use
  Company Number: JP-BRISTOL-MYERS SQUIBB COMPANY-13506274

PATIENT
  Age: 61 Year
  Sex: Female

DRUGS (4)
  1. PARAPLATIN [Suspect]
     Indication: OVARIAN CANCER
     Route: 041
     Dates: start: 20060810, end: 20060810
  2. TAXOL [Suspect]
     Indication: OVARIAN CANCER
     Route: 041
     Dates: start: 20060810, end: 20060810
  3. DECADRON [Concomitant]
     Indication: OVARIAN CANCER
     Route: 042
  4. NASEA [Concomitant]
     Indication: ALCOHOL USE
     Route: 042

REACTIONS (1)
  - ANAPHYLACTIC SHOCK [None]
